FAERS Safety Report 9678163 (Version 2)
Quarter: 2013Q4

REPORT INFORMATION
  Report Type: Report from Study
  Country: JP (occurrence: JP)
  Receive Date: 20131108
  Receipt Date: 20131201
  Transmission Date: 20140711
  Serious: Yes (Hospitalization, Other)
  Sender: FDA-Public Use
  Company Number: JP-TAKEDA-2013TJP002586

PATIENT
  Age: 78 Year
  Sex: Male
  Weight: 52 kg

DRUGS (5)
  1. PIOGLITAZONE [Suspect]
     Indication: TYPE 2 DIABETES MELLITUS
     Dosage: 7.5 MG, UNK
     Route: 048
     Dates: start: 20121016, end: 20130121
  2. PIOGLITAZONE [Suspect]
     Dosage: 15 MG, QD
     Route: 048
     Dates: start: 20130122, end: 20130716
  3. APIDRA [Concomitant]
     Indication: TYPE 2 DIABETES MELLITUS
     Dosage: 5 IU, TID
     Route: 058
     Dates: start: 20100901, end: 20130716
  4. LANTUS [Concomitant]
     Indication: TYPE 2 DIABETES MELLITUS
     Dosage: 5 IU, QD
     Route: 042
     Dates: start: 20100901, end: 20130531
  5. TRESIBA [Concomitant]
     Indication: TYPE 2 DIABETES MELLITUS
     Route: 058
     Dates: start: 20130601, end: 20130716

REACTIONS (1)
  - Pancreatic carcinoma [Not Recovered/Not Resolved]
